FAERS Safety Report 7352244-7 (Version None)
Quarter: 2011Q1

REPORT INFORMATION
  Report Type: 
  Country: None (occurrence: None)
  Receive Date: 20110315
  Receipt Date: 20110303
  Transmission Date: 20110831
  Serious: Yes (Hospitalization, Disabling)
  Sender: FDA-Public Use
  Company Number: CH-NOVOPROD-307132

PATIENT
  Age: 83 Year
  Sex: Male
  Weight: 95 kg

DRUGS (8)
  1. VICTOZA [Suspect]
     Indication: TYPE 2 DIABETES MELLITUS
     Dosage: 0.6 MG / S.C.
     Route: 058
     Dates: start: 20100130, end: 20100228
  2. ZYLORIC                            /00003301/ [Concomitant]
  3. BYETTA [Suspect]
     Indication: TYPE 2 DIABETES MELLITUS
     Dosage: 5 MG, BID
     Route: 058
     Dates: start: 20091209, end: 20100115
  4. INSULATARD [Concomitant]
     Indication: TYPE 2 DIABETES MELLITUS
     Dosage: 26+20 U
     Dates: start: 20100401
  5. CO-APROVEL [Concomitant]
  6. ASPIRIN [Concomitant]
     Dosage: 100 MG, UNK
  7. SORTIS                             /01326101/ [Concomitant]
  8. LANTUS [Concomitant]
     Indication: TYPE 2 DIABETES MELLITUS
     Dosage: 30 U, QD
     Route: 058
     Dates: start: 20080101, end: 20100401

REACTIONS (1)
  - RENAL FAILURE ACUTE [None]
